FAERS Safety Report 6872834-5 (Version None)
Quarter: 2010Q3

REPORT INFORMATION
  Report Type: 
  Country: None (occurrence: None)
  Receive Date: 20100723
  Receipt Date: 20081210
  Transmission Date: 20110219
  Serious: No
  Sender: FDA-Public Use
  Company Number: US-PFIZER INC-2008085868

PATIENT
  Sex: Female
  Weight: 54.43 kg

DRUGS (2)
  1. CHANTIX [Suspect]
     Dosage: UNK MG, UNK
     Dates: start: 20081001
  2. VITAMINS [Concomitant]

REACTIONS (6)
  - ABNORMAL DREAMS [None]
  - ANXIETY [None]
  - INSOMNIA [None]
  - MIDDLE INSOMNIA [None]
  - NAUSEA [None]
  - VOMITING [None]
